FAERS Safety Report 12913727 (Version 2)
Quarter: 2016Q4

REPORT INFORMATION
  Report Type: Report from Study
  Country: NL (occurrence: NL)
  Receive Date: 20161106
  Receipt Date: 20161115
  Transmission Date: 20170207
  Serious: Yes (Other)
  Sender: FDA-Public Use
  Company Number: NL-BRISTOL-MYERS SQUIBB COMPANY-BMS-2016-091886

PATIENT
  Age: 58 Year

DRUGS (1)
  1. NIVOLUMAB [Suspect]
     Active Substance: NIVOLUMAB
     Indication: PRODUCT USED FOR UNKNOWN INDICATION
     Route: 065

REACTIONS (4)
  - Hypophysitis [Unknown]
  - Primary hypogonadism [Unknown]
  - Malignant neoplasm progression [Unknown]
  - Diabetes insipidus [Unknown]

NARRATIVE: CASE EVENT DATE: 20160921
